FAERS Safety Report 14100936 (Version 1)
Quarter: 2017Q4

REPORT INFORMATION
  Report Type: Spontaneous
  Country: US (occurrence: US)
  Receive Date: 20171018
  Receipt Date: 20171018
  Transmission Date: 20180321
  Serious: No
  Sender: FDA-Public Use
  Company Number: US-ELI_LILLY_AND_COMPANY-US201710005876

PATIENT
  Sex: Male

DRUGS (8)
  1. LISINOPRIL. [Interacting]
     Active Substance: LISINOPRIL
     Indication: BLOOD CHOLESTEROL
     Dosage: 10 MG, DAILY
     Route: 065
     Dates: start: 2007
  2. TOUJEO [Interacting]
     Active Substance: INSULIN GLARGINE
     Indication: TYPE 2 DIABETES MELLITUS
     Dosage: 65 U, EACH MORNING
     Route: 065
     Dates: start: 20170822
  3. ATORVASTATIN [Interacting]
     Active Substance: ATORVASTATIN
     Indication: PRODUCT USED FOR UNKNOWN INDICATION
     Dosage: 40 MG, DAILY
     Route: 065
     Dates: start: 2007
  4. LEVEMIR [Interacting]
     Active Substance: INSULIN DETEMIR
     Indication: TYPE 2 DIABETES MELLITUS
     Dosage: UNK, UNKNOWN
     Route: 065
     Dates: end: 201708
  5. HUMALOG [Suspect]
     Active Substance: INSULIN LISPRO
     Indication: TYPE 2 DIABETES MELLITUS
     Dosage: 15 U, BID
     Route: 065
     Dates: start: 2008
  6. METFORMIN [Interacting]
     Active Substance: METFORMIN HYDROCHLORIDE
     Indication: TYPE 1 DIABETES MELLITUS
     Dosage: 500 MG, BID
     Route: 065
  7. HUMALOG [Interacting]
     Active Substance: INSULIN LISPRO
     Dosage: 12 U, BID
     Route: 058
  8. BABY ASPIRIN [Interacting]
     Active Substance: ASPIRIN
     Indication: PRODUCT USED FOR UNKNOWN INDICATION
     Dosage: 1 DF, DAILY
     Route: 065

REACTIONS (5)
  - Disorientation [Unknown]
  - Hypoaesthesia oral [Unknown]
  - Dizziness [Unknown]
  - Paraesthesia oral [Unknown]
  - Blood glucose decreased [Unknown]

NARRATIVE: CASE EVENT DATE: 201703
